FAERS Safety Report 8474510-4 (Version None)
Quarter: 2012Q2

REPORT INFORMATION
  Report Type: 
  Country: None (occurrence: None)
  Receive Date: 20120628
  Receipt Date: 20120627
  Transmission Date: 20120825
  Serious: Yes (Death, Other)
  Sender: FDA-Public Use
  Company Number: PHFR2012GB000684

PATIENT
  Sex: Male
  Weight: 79 kg

DRUGS (7)
  1. ASPIRIN [Concomitant]
     Dosage: 75 MG, UNK
     Route: 048
  2. METFORMIN HCL [Concomitant]
     Dosage: 2 G, UNK
  3. BENDROFLUMETHIAZIDE [Concomitant]
     Dosage: 2.5 MG, UNK
  4. HYOSCINE HYDROBROMIDE [Concomitant]
  5. CLOZARIL [Suspect]
     Indication: SCHIZOPHRENIA
     Dosage: 500 MG
     Route: 048
     Dates: start: 20050708
  6. SIMVASTATIN [Concomitant]
     Dosage: 40 MG, UNK
  7. BISOPROLOL FUMARATE [Concomitant]
     Dosage: 5 MG, UNK

REACTIONS (7)
  - CARDIAC DEATH [None]
  - CARDIAC FAILURE [None]
  - HYPERTENSIVE HEART DISEASE [None]
  - LEFT VENTRICULAR HYPERTROPHY [None]
  - DIABETES MELLITUS [None]
  - ANXIETY [None]
  - MYOCARDIAL BRIDGING [None]
